FAERS Safety Report 7892456-7 (Version None)
Quarter: 2011Q4

REPORT INFORMATION
  Report Type: 
  Country: None (occurrence: None)
  Receive Date: 20111102
  Receipt Date: 20111020
  Transmission Date: 20120403
  Serious: Yes (Hospitalization)
  Sender: FDA-Public Use
  Company Number: 2011SP046152

PATIENT
  Age: 51 Year
  Sex: Female
  Weight: 49.4 kg

DRUGS (45)
  1. PRIMPERAN /00041901/ [Concomitant]
  2. RIBAVIRIN [Suspect]
     Indication: HEPATITIS C
     Dosage: UNK;UNK
     Dates: start: 20110919, end: 20110919
  3. RIBAVIRIN [Suspect]
     Indication: HEPATITIS C
     Dosage: UNK;UNK
     Dates: start: 20110921, end: 20110921
  4. RIBAVIRIN [Suspect]
     Indication: HEPATITIS C
     Dosage: UNK;UNK
     Dates: start: 20110916, end: 20110916
  5. RIBAVIRIN [Suspect]
     Indication: HEPATITIS C
     Dosage: UNK;UNK
     Dates: start: 20110917, end: 20110917
  6. RIBAVIRIN [Suspect]
     Indication: HEPATITIS C
     Dosage: UNK;UNK
     Dates: start: 20110920, end: 20110920
  7. RIBAVIRIN [Suspect]
     Indication: HEPATITIS C
     Dosage: UNK;UNK
     Dates: start: 20110916, end: 20110916
  8. RIBAVIRIN [Suspect]
     Indication: HEPATITIS C
     Dosage: UNK;UNK
     Dates: start: 20110921, end: 20110921
  9. RIBAVIRIN [Suspect]
     Indication: HEPATITIS C
     Dosage: UNK;UNK
     Dates: start: 20110920, end: 20110920
  10. RIBAVIRIN [Suspect]
     Indication: HEPATITIS C
     Dosage: UNK;UNK
     Dates: start: 20110922, end: 20110928
  11. RIBAVIRIN [Suspect]
     Indication: HEPATITIS C
     Dosage: UNK;UNK
     Dates: start: 20110918, end: 20110918
  12. RIBAVIRIN [Suspect]
     Indication: HEPATITIS C
     Dosage: UNK;UNK
     Dates: start: 20111007, end: 20111013
  13. RIBAVIRIN [Suspect]
     Indication: HEPATITIS C
     Dosage: UNK;UNK
     Dates: start: 20110917, end: 20110917
  14. RIBAVIRIN [Suspect]
     Indication: HEPATITIS C
     Dosage: UNK;UNK
     Dates: start: 20110915, end: 20110915
  15. RIBAVIRIN [Suspect]
     Indication: HEPATITIS C
     Dosage: UNK;UNK
     Dates: start: 20110928, end: 20111005
  16. RIBAVIRIN [Suspect]
     Indication: HEPATITIS C
     Dosage: UNK;UNK
     Dates: start: 20110918, end: 20110918
  17. RIBAVIRIN [Suspect]
     Indication: HEPATITIS C
     Dosage: UNK;UNK
     Dates: start: 20110919, end: 20110919
  18. RIBAVIRIN [Suspect]
     Indication: HEPATITIS C
     Dosage: UNK;UNK
     Dates: start: 20110929, end: 20111006
  19. RIBAVIRIN [Suspect]
     Indication: HEPATITIS C
     Dosage: UNK;UNK
     Dates: start: 20111006, end: 20111012
  20. ADOFEED [Concomitant]
  21. ENSURE /00472201/ [Concomitant]
  22. FAMOTIDINE [Concomitant]
  23. PEGINTERFERON ALFA-2B [Suspect]
     Indication: HEPATITIS C
     Dosage: 300 MG;BID;UNK
     Dates: start: 20110915, end: 20110928
  24. PRIMPERAN /00041901/ [Concomitant]
  25. RIBAVIRIN [Suspect]
     Indication: HEPATITIS C
     Dosage: 300 MG;BID;UNK
     Dates: start: 20110915, end: 20110915
  26. ACETAMINOPHEN [Concomitant]
  27. SELBEX [Concomitant]
  28. PRIMPERAN /00041901/ [Concomitant]
  29. GASTER /00661201/ [Concomitant]
  30. PRIMPERAN /00041901/ [Concomitant]
  31. PEG-INTRON [Suspect]
     Indication: HEPATITIS C
     Dosage: 80 MCG;QW;UNK, 80 MCG;QW;UNK
     Dates: start: 20110922, end: 20110922
  32. PEG-INTRON [Suspect]
     Indication: HEPATITIS C
     Dosage: 80 MCG;QW;UNK, 80 MCG;QW;UNK
     Dates: start: 20110915, end: 20110915
  33. PEG-INTRON [Suspect]
     Indication: HEPATITIS C
     Dosage: UNK;UNK, UNK;UNK
     Dates: start: 20111006, end: 20111006
  34. PEG-INTRON [Suspect]
     Indication: HEPATITIS C
     Dosage: UNK;UNK, UNK;UNK
     Dates: start: 20110928, end: 20110928
  35. PEGINTERFERON ALFA-2B [Suspect]
     Indication: HEPATITIS C
     Dosage: UNK;UNK
     Dates: start: 20110915, end: 20110927
  36. PEGINTERFERON ALFA-2B [Suspect]
     Indication: HEPATITIS C
     Dosage: UNK;UNK
     Dates: start: 20110928, end: 20111012
  37. PEGINTERFERON ALFA-2B [Suspect]
     Indication: HEPATITIS C
     Dosage: UNK;UNK
     Dates: start: 20110929, end: 20111013
  38. MIYA BM [Concomitant]
  39. SELBEX [Concomitant]
  40. POTASSIUM CHLORIDE [Concomitant]
  41. AMLODIPINE BESYLATE [Concomitant]
  42. MIYA-BM [Concomitant]
  43. GASTER /00661201/ [Concomitant]
  44. PRIMPERAN /00041901/ [Concomitant]
  45. SELBEX [Concomitant]

REACTIONS (1)
  - INAPPROPRIATE ANTIDIURETIC HORMONE SECRETION [None]
